FAERS Safety Report 10878898 (Version 6)
Quarter: 2019Q3

REPORT INFORMATION
  Report Type: Spontaneous
  Country: US (occurrence: US)
  Receive Date: 20150302
  Receipt Date: 20190807
  Transmission Date: 20191004
  Serious: Yes (Hospitalization, Other)
  Sender: FDA-Public Use
  Company Number: US-PFIZER INC-2015075682

PATIENT
  Age: 47 Year
  Sex: Female
  Weight: 49.9 kg

DRUGS (9)
  1. CELEBREX [Suspect]
     Active Substance: CELECOXIB
     Indication: SPONDYLITIS
     Dosage: 200 MG, 1X/DAY
  2. DILAUDID [Concomitant]
     Active Substance: HYDROMORPHONE HYDROCHLORIDE
     Indication: ATROPHY
     Dosage: 4 MG, UNK [TWO TO THREE TIMES A DAY BY MOUTH ]
     Route: 048
  3. CELEBREX [Suspect]
     Active Substance: CELECOXIB
     Indication: POLYNEUROPATHY
     Dosage: 400 MG, 1X/DAY (ONCE IN MORNING)
  4. KEPPRA [Concomitant]
     Active Substance: LEVETIRACETAM
     Indication: SEIZURE
     Dosage: 1500 MG IN THE MORNING, ^500^ IN THE AFTERNOON AND ^1500^ AT NIGHT
     Dates: start: 20141020
  5. DILAUDID [Concomitant]
     Active Substance: HYDROMORPHONE HYDROCHLORIDE
     Indication: ARTHRITIS
  6. CELEBREX [Suspect]
     Active Substance: CELECOXIB
     Indication: ARTHRITIS
     Dosage: 400 MG, 1X/DAY
  7. CELEBREX [Suspect]
     Active Substance: CELECOXIB
     Indication: ARTHRITIS
     Dosage: 400 MG, 1X/DAY
     Route: 048
  8. DILANTIN [Concomitant]
     Active Substance: PHENYTOIN
     Indication: SEIZURE
     Dosage: 300 MG, 1X/DAY (IN EVENING)
     Dates: start: 20141004
  9. LIDOCAINE. [Concomitant]
     Active Substance: LIDOCAINE
     Indication: PAIN
     Dosage: UNK [5% PATCH, CAN PUT ON UP TO TWO PATCHES AND CHANGE EVERY 24-48 HOURS]

REACTIONS (7)
  - Malaise [Not Recovered/Not Resolved]
  - Overdose [Unknown]
  - Product dispensing error [Unknown]
  - Seizure [Not Recovered/Not Resolved]
  - Dyspnoea [Unknown]
  - Disease recurrence [Not Recovered/Not Resolved]
  - Condition aggravated [Not Recovered/Not Resolved]

NARRATIVE: CASE EVENT DATE: 20140906
